FAERS Safety Report 8080414 (Version 3)
Quarter: 2015Q1

REPORT INFORMATION
  Report Type: Spontaneous
  Country: US (occurrence: US)
  Receive Date: 20110808
  Receipt Date: 20150202
  Transmission Date: 20150721
  Serious: Yes (Other)
  Sender: FDA-Public Use
  Company Number: US-ROCHE-774859

PATIENT
  Age: 17 Year
  Sex: Female
  Weight: 46.7 kg

DRUGS (1)
  1. ACCUTANE [Suspect]
     Active Substance: ISOTRETINOIN
     Indication: ACNE
     Route: 048
     Dates: start: 199912, end: 20000530

REACTIONS (11)
  - Depression [Unknown]
  - Crohn^s disease [Unknown]
  - Insomnia [Unknown]
  - Epistaxis [Unknown]
  - Irritable bowel syndrome [Unknown]
  - Colitis ulcerative [Unknown]
  - Anxiety [Unknown]
  - Bipolar disorder [Unknown]
  - Anaemia [Unknown]
  - Inflammatory bowel disease [Unknown]
  - Lip dry [Unknown]

NARRATIVE: CASE EVENT DATE: 2000
